FAERS Safety Report 15806021 (Version 3)
Quarter: 2019Q1

REPORT INFORMATION
  Report Type: Spontaneous
  Country: US (occurrence: US)
  Receive Date: 20190110
  Receipt Date: 20190130
  Transmission Date: 20190417
  Serious: Yes (Other)
  Sender: FDA-Public Use
  Company Number: US-BAUSCH-BL-2019-000646

PATIENT
  Age: 22 Year
  Sex: Male
  Weight: 83.99 kg

DRUGS (2)
  1. XIFAXAN [Suspect]
     Active Substance: RIFAXIMIN
     Indication: GASTROINTESTINAL BACTERIAL OVERGROWTH
     Dosage: STARTED IN EARLY NOV/2018, MAY BE ON 2/NOV/2018 OR 3/NOV/2018.
     Route: 065
     Dates: start: 201811, end: 20181117
  2. XIFAXAN [Suspect]
     Active Substance: RIFAXIMIN
     Indication: OFF LABEL USE

REACTIONS (3)
  - Dyspnoea [Recovering/Resolving]
  - Type IV hypersensitivity reaction [Recovering/Resolving]
  - Off label use [Recovered/Resolved]

NARRATIVE: CASE EVENT DATE: 201811
